FAERS Safety Report 6771895-1 (Version None)
Quarter: 2010Q2

REPORT INFORMATION
  Report Type: 
  Country: None (occurrence: None)
  Receive Date: 20100616
  Receipt Date: 20090903
  Transmission Date: 20101027
  Serious: No
  Sender: FDA-Public Use
  Company Number: US-ASTRAZENECA-2009SE11361

PATIENT
  Age: 48 Year
  Sex: Female
  Weight: 104.3 kg

DRUGS (1)
  1. ENTOCORT EC [Suspect]
     Dosage: 3 CAPSULES
     Route: 048
     Dates: start: 20090501

REACTIONS (1)
  - HOT FLUSH [None]
